FAERS Safety Report 6186678-3 (Version None)
Quarter: 2009Q2

REPORT INFORMATION
  Report Type: 
  Country: None (occurrence: None)
  Receive Date: 20090512
  Receipt Date: 20090507
  Transmission Date: 20091009
  Serious: No
  Sender: FDA-Public Use
  Company Number: US-B.I. PHARMACEUTICALS,INC./RIDGEFIELD-2009-BP-05810BP

PATIENT
  Age: 74 Year
  Sex: Male

DRUGS (1)
  1. MOBIC [Suspect]
     Indication: ARTHRITIS
     Dosage: 7.5MG
     Route: 048
     Dates: start: 20090504, end: 20090506

REACTIONS (3)
  - ARTHRITIS [None]
  - DIZZINESS [None]
  - FALL [None]
